FAERS Safety Report 8185642-2 (Version None)
Quarter: 2012Q1

REPORT INFORMATION
  Report Type: 
  Country: None (occurrence: None)
  Receive Date: 20120305
  Receipt Date: 20120302
  Transmission Date: 20120608
  Serious: Yes (Other)
  Sender: FDA-Public Use
  Company Number: CHPA2012US004143

PATIENT
  Age: 47 Year
  Sex: Female

DRUGS (3)
  1. THYROID TAB [Concomitant]
  2. PROBIOTICS [Suspect]
     Dosage: UNK
     Dates: start: 20091001, end: 20120223
  3. PREVACID 24 HR [Suspect]
     Indication: DYSPEPSIA
     Dosage: 30 MG, QD
     Route: 048
     Dates: start: 20091001

REACTIONS (10)
  - ABDOMINAL DISTENSION [None]
  - OEDEMA PERIPHERAL [None]
  - DRUG INEFFECTIVE FOR UNAPPROVED INDICATION [None]
  - INCORRECT DRUG ADMINISTRATION DURATION [None]
  - INFLAMMATION [None]
  - PAIN [None]
  - OVERDOSE [None]
  - CARDIAC DISORDER [None]
  - DISEASE RECURRENCE [None]
  - PRURITUS [None]
